FAERS Safety Report 6596553-8 (Version None)
Quarter: 2010Q1

REPORT INFORMATION
  Report Type: 
  Country: None (occurrence: None)
  Receive Date: 20100222
  Receipt Date: 20100222
  Transmission Date: 20100710
  Serious: Yes (Death, Other)
  Sender: FDA-Public Use
  Company Number: None

PATIENT
  Sex: Female

DRUGS (1)
  1. NEUPOGEN [Suspect]
     Dosage: 480 3X WEEK SUBQ
     Route: 058
     Dates: start: 20090929, end: 20100217

REACTIONS (1)
  - DEATH [None]
